FAERS Safety Report 20690197 (Version 2)
Quarter: 2022Q2

REPORT INFORMATION
  Report Type: Report from Study
  Country: SK (occurrence: SK)
  Receive Date: 20220408
  Receipt Date: 20220608
  Transmission Date: 20220720
  Serious: Yes (Hospitalization)
  Sender: FDA-Public Use
  Company Number: SK-NOVARTISPH-NVSC2022SK071830

PATIENT
  Age: 15 Year
  Sex: Female
  Weight: 38 kg

DRUGS (7)
  1. OFATUMUMAB [Suspect]
     Active Substance: OFATUMUMAB
     Indication: Multiple sclerosis
     Dosage: UNK
     Route: 058
     Dates: start: 20220328
  2. SODIUM CHLORIDE [Concomitant]
     Active Substance: SODIUM CHLORIDE
     Indication: Asthenia
     Dosage: UNK
     Route: 065
     Dates: start: 20220328, end: 20220328
  3. METAMIZOLE [Concomitant]
     Active Substance: METAMIZOLE
     Indication: Headache
     Dosage: UNK
     Route: 065
     Dates: start: 20220328, end: 20220328
  4. METAMIZOLE [Concomitant]
     Active Substance: METAMIZOLE
     Indication: Abdominal pain
  5. BENYLETS [Concomitant]
     Indication: Headache
     Dosage: 500 ML
     Route: 065
     Dates: start: 20220328, end: 20220328
  6. BENYLETS [Concomitant]
     Indication: Vomiting
  7. VITAMIN D [Concomitant]
     Active Substance: VITAMIN D NOS
     Indication: Hypovitaminosis
     Dosage: UNK
     Route: 065
     Dates: start: 20211029

REACTIONS (1)
  - Injection related reaction [Recovered/Resolved]

NARRATIVE: CASE EVENT DATE: 20220328
